FAERS Safety Report 21982602 (Version 2)
Quarter: 2023Q1

REPORT INFORMATION
  Report Type: Spontaneous
  Country: JP (occurrence: JP)
  Receive Date: 20230213
  Receipt Date: 20230224
  Transmission Date: 20230418
  Serious: Yes (Death, Hospitalization)
  Sender: FDA-Public Use
  Company Number: JP-CHUGAI-2022050385

PATIENT
  Age: 53 Year
  Sex: Female
  Weight: 56.4 kg

DRUGS (22)
  1. PERJETA [Suspect]
     Active Substance: PERTUZUMAB
     Indication: Breast cancer
     Dosage: 840 MILLIGRAM, SINGLE
     Route: 041
     Dates: start: 20221026, end: 20221026
  2. PERJETA [Suspect]
     Active Substance: PERTUZUMAB
     Dosage: 420 MILLIGRAM, ONCE/3WEEKS
     Route: 041
     Dates: start: 20221117, end: 20221208
  3. HERCEPTIN [Suspect]
     Active Substance: TRASTUZUMAB
     Indication: Breast cancer
     Dosage: 450 MILLIGRAM, SINGLE
     Route: 041
     Dates: start: 20221026, end: 20221026
  4. HERCEPTIN [Suspect]
     Active Substance: TRASTUZUMAB
     Dosage: 330 MILLIGRAM, SINGLE
     Route: 041
     Dates: start: 20221117, end: 20221117
  5. DOCETAXEL [Concomitant]
     Active Substance: DOCETAXEL
     Indication: Breast cancer
     Dosage: UNK
     Route: 041
  6. DEXAMETHASONE SODIUM PHOSPHATE [Concomitant]
     Active Substance: DEXAMETHASONE SODIUM PHOSPHATE
     Indication: Breast cancer
     Dosage: 6.6 MILLIGRAM
     Route: 042
     Dates: start: 20221026, end: 20221208
  7. TAMOXIFEN CITRATE [Concomitant]
     Active Substance: TAMOXIFEN CITRATE
     Indication: Breast cancer
     Dosage: 20 MILLIGRAM, QD
     Route: 048
     Dates: start: 20221117
  8. LOXOPROFEN SODIUM [Concomitant]
     Active Substance: LOXOPROFEN SODIUM
     Dosage: UNK UNK, SINGLE
     Route: 048
     Dates: start: 20221003, end: 20221003
  9. METOCLOPRAMIDE [Concomitant]
     Active Substance: METOCLOPRAMIDE
     Dosage: UNK UNK, SINGLE
     Route: 048
     Dates: start: 20221026, end: 20221026
  10. FEBUXOSTAT [Concomitant]
     Active Substance: FEBUXOSTAT
     Dosage: 10 MILLIGRAM
     Route: 048
     Dates: start: 20221025, end: 20221031
  11. URSODIOL [Concomitant]
     Active Substance: URSODIOL
     Dosage: 50 MILLIGRAM
     Route: 048
     Dates: start: 20221025, end: 20230113
  12. MORPHINE HYDROCHLORIDE [Concomitant]
     Active Substance: MORPHINE HYDROCHLORIDE
     Dosage: 5 MILLIGRAM
     Route: 048
     Dates: start: 20221025, end: 20230113
  13. FUROSEMIDE [Concomitant]
     Active Substance: FUROSEMIDE
     Dosage: 20 MILLIGRAM
     Route: 048
     Dates: start: 20221027, end: 20221029
  14. FUROSEMIDE [Concomitant]
     Active Substance: FUROSEMIDE
     Dosage: 20 MILLIGRAM
     Route: 048
     Dates: start: 20221030, end: 20230113
  15. LASIX [Concomitant]
     Active Substance: FUROSEMIDE
     Dosage: 40 MILLIGRAM
     Route: 048
     Dates: start: 20221028, end: 20221103
  16. MAGNESIUM OXIDE [Concomitant]
     Active Substance: MAGNESIUM OXIDE
     Dosage: 330 MILLIGRAM
     Route: 048
     Dates: start: 20221028, end: 20230113
  17. SODIUM PICOSULFATE [Concomitant]
     Active Substance: SODIUM PICOSULFATE
     Dosage: 10 MILLILITER, SINGLE
     Route: 048
     Dates: start: 20221028, end: 20221028
  18. SENNOSIDES A AND B [Concomitant]
     Active Substance: SENNOSIDES A AND B
     Dosage: 12 MILLIGRAM, SINGLE
     Route: 048
     Dates: start: 20221031, end: 20221031
  19. POSTERISAN FORTE [ESCHERICHIA COLI;HYDROCORTISONE] [Concomitant]
     Dosage: 2 GRAM
     Route: 003
     Dates: start: 20221102, end: 20230113
  20. GLYCOSAMINOGLYCANS [Concomitant]
     Active Substance: GLYCOSAMINOGLYCANS
     Dosage: 50 GRAM
     Route: 003
     Dates: start: 20221109
  21. GLYCOSAMINOGLYCANS [Concomitant]
     Active Substance: GLYCOSAMINOGLYCANS
     Dosage: UNK
     Route: 003
     Dates: start: 20221208
  22. LOCOID [Concomitant]
     Active Substance: HYDROCORTISONE BUTYRATE
     Dosage: 5 GRAM
     Route: 003
     Dates: start: 20221109

REACTIONS (3)
  - Anaphylactic reaction [Recovered/Resolved]
  - Breast cancer [Fatal]
  - Infusion related reaction [Recovered/Resolved]

NARRATIVE: CASE EVENT DATE: 20221026
